FAERS Safety Report 24274855 (Version 1)
Quarter: 2024Q3

REPORT INFORMATION
  Report Type: Spontaneous
  Country: US (occurrence: US)
  Receive Date: 20240902
  Receipt Date: 20240902
  Transmission Date: 20241016
  Serious: No
  Sender: IPSEN
  Company Number: US-IPSEN Group, Research and Development-2024-16740

PATIENT
  Sex: Female

DRUGS (2)
  1. DYSPORT [Suspect]
     Active Substance: ABOBOTULINUMTOXINA
     Indication: Hemiplegia
     Dosage: EVERY 3 MONTHS
     Route: 030
     Dates: start: 20200422, end: 20200422
  2. DANTROLENE [Concomitant]
     Active Substance: DANTROLENE

REACTIONS (1)
  - Drug ineffective [Unknown]
